FAERS Safety Report 6865194-7 (Version None)
Quarter: 2010Q3

REPORT INFORMATION
  Report Type: 
  Country: None (occurrence: None)
  Receive Date: 20100721
  Receipt Date: 20080509
  Transmission Date: 20110219
  Serious: Yes (Other)
  Sender: FDA-Public Use
  Company Number: US-PFIZER INC-2008032804

PATIENT
  Sex: Female
  Weight: 69.85 kg

DRUGS (13)
  1. CHANTIX [Suspect]
     Indication: SMOKING CESSATION THERAPY
     Dates: start: 20080330
  2. VERAPAMIL - SLOW RELEASE [Concomitant]
     Indication: HYPERTENSION
     Dosage: 300 MG 24 HOURS CAPS ONCE DAILY
  3. AVALIDE [Concomitant]
     Indication: HYPERTENSION
     Dosage: 300 MG/12.5 MG TABLET EVERY MORNING
  4. FEMHRT [Concomitant]
     Indication: MENOPAUSE
  5. ACETYLSALICYLIC ACID [Concomitant]
  6. ZYRTEC [Concomitant]
     Dosage: 10 MG TABLET EVERY MORNING
  7. MONTELUKAST SODIUM [Concomitant]
     Dosage: 10 MG TABLET BEFORE BED
  8. ALBUTEROL [Concomitant]
     Dosage: 90 MCG/ACTUATION AEROSOL INHALER
     Route: 055
  9. NASONEX [Concomitant]
     Indication: HYPERSENSITIVITY
     Dosage: QD,SPRAY 1 SPRAY IN EACH NOSTRAL
     Route: 055
  10. FISH OIL [Concomitant]
  11. NIACIN [Concomitant]
  12. CITRACAL + D [Concomitant]
  13. SYMBICORT [Concomitant]
     Dosage: BID,160 MCG/4.5 MCG/ACUAITION INHALATION

REACTIONS (4)
  - BLOOD PRESSURE DECREASED [None]
  - HYPERTENSION [None]
  - NAUSEA [None]
  - VOMITING [None]
